FAERS Safety Report 5835140-3 (Version None)
Quarter: 2008Q3

REPORT INFORMATION
  Report Type: 
  Country: None (occurrence: None)
  Receive Date: 20080804
  Receipt Date: 20080710
  Transmission Date: 20090109
  Serious: Yes (Other)
  Sender: FDA-Public Use
  Company Number: 001#1#2008-00435

PATIENT
  Age: 60 Year
  Sex: Female

DRUGS (5)
  1. NEUPRO [Suspect]
     Dosage: 8 MG/24H (8 MG/24H 1 IN 1 DAY(S); TRANSDERMAL
     Route: 062
     Dates: start: 20080101
  2. ENTACAPONE (ENTACAPONE) [Concomitant]
  3. ISICOM (CARBIDOPA, LEVODOPA) [Concomitant]
  4. AMANTADINE-SULFATE 9AMANTADINE SULFATE) [Concomitant]
  5. METFORMIN HCL [Concomitant]

REACTIONS (4)
  - APPLICATION SITE REACTION [None]
  - DEPRESSION [None]
  - GAIT DISTURBANCE [None]
  - PHARMACEUTICAL PRODUCT COMPLAINT [None]
